FAERS Safety Report 11381673 (Version 1)
Quarter: 2015Q3

REPORT INFORMATION
  Report Type: Spontaneous
  Country: US (occurrence: US)
  Receive Date: 20150814
  Receipt Date: 20150814
  Transmission Date: 20151125
  Serious: No
  Sender: FDA-Public Use
  Company Number: US-GALDERMA-US14002607

PATIENT
  Age: 28 Year
  Sex: Male

DRUGS (1)
  1. DIFFERIN [Suspect]
     Active Substance: ADAPALENE
     Indication: SKIN WRINKLING
     Dosage: 0.3%
     Route: 061
     Dates: start: 201406

REACTIONS (3)
  - Condition aggravated [Unknown]
  - Product use issue [Unknown]
  - Dry skin [Unknown]
